FAERS Safety Report 26069728 (Version 1)
Quarter: 2025Q4

REPORT INFORMATION
  Report Type: Spontaneous
  Country: EU (occurrence: EU)
  Receive Date: 20251120
  Receipt Date: 20251120
  Transmission Date: 20260117
  Serious: Yes (Hospitalization, Other)
  Sender: AUROBINDO
  Company Number: EU-AFSSAPS-TO2025001815

PATIENT
  Age: 90 Year
  Sex: Male

DRUGS (2)
  1. FUROSEMIDE [Suspect]
     Active Substance: FUROSEMIDE
     Indication: Chronic kidney disease
     Dosage: 20 MILLIGRAM, ONCE A DAY
     Dates: end: 20250801
  2. ENTRESTO [Suspect]
     Active Substance: SACUBITRIL\VALSARTAN
     Indication: Atrial fibrillation
     Dosage: 1 DOSAGE FORM, ONCE A DAY
     Dates: end: 20250801

REACTIONS (1)
  - Acute kidney injury [Recovered/Resolved]

NARRATIVE: CASE EVENT DATE: 20250801
